FAERS Safety Report 5907312-0 (Version None)
Quarter: 2008Q4

REPORT INFORMATION
  Report Type: 
  Country: None (occurrence: None)
  Receive Date: 20081003
  Receipt Date: 20080924
  Transmission Date: 20090506
  Serious: Yes (Hospitalization, Other)
  Sender: FDA-Public Use
  Company Number: US-AMGEN-QUU309651

PATIENT
  Sex: Female

DRUGS (12)
  1. KINERET [Suspect]
     Indication: DRUG USE FOR UNKNOWN INDICATION
     Route: 058
     Dates: end: 20080416
  2. THALIDOMIDE [Suspect]
     Route: 048
     Dates: start: 20080404, end: 20080415
  3. IBUPROFEN [Concomitant]
     Dates: start: 20070424
  4. NAPROXEN [Concomitant]
     Dates: start: 20070507
  5. PREDNISONE [Concomitant]
     Dates: start: 20070507
  6. ZYRTEC [Concomitant]
  7. BENADRYL [Concomitant]
  8. HYDROXYZINE [Concomitant]
  9. CYCLOSPORINE [Concomitant]
     Dates: start: 20080417
  10. CEFTRIAXONE [Concomitant]
     Route: 042
     Dates: start: 20080417, end: 20080419
  11. VANCOMYCIN HYDROCHLORIDE [Concomitant]
     Route: 042
     Dates: start: 20080417, end: 20080419
  12. METHOTREXATE [Concomitant]
     Dates: end: 20080314

REACTIONS (15)
  - ALANINE AMINOTRANSFERASE INCREASED [None]
  - ARTHRITIS [None]
  - ASPARTATE AMINOTRANSFERASE INCREASED [None]
  - ATELECTASIS [None]
  - BLOOD PRESSURE DECREASED [None]
  - DRUG INEFFECTIVE [None]
  - HISTIOCYTOSIS HAEMATOPHAGIC [None]
  - JUVENILE ARTHRITIS [None]
  - LOCAL REACTION [None]
  - MALAISE [None]
  - PRURITUS [None]
  - PYREXIA [None]
  - RASH [None]
  - RASH ERYTHEMATOUS [None]
  - VOMITING [None]
